FAERS Safety Report 7520115-9 (Version None)
Quarter: 2011Q2

REPORT INFORMATION
  Report Type: 
  Country: None (occurrence: None)
  Receive Date: 20110602
  Receipt Date: 20110525
  Transmission Date: 20111010
  Serious: Yes (Hospitalization, Other)
  Sender: FDA-Public Use
  Company Number: GB-ALLERGAN-1107296US

PATIENT
  Age: 39 Year
  Sex: Female
  Weight: 64 kg

DRUGS (2)
  1. BOTULINUM TOXIN TYPE A [Suspect]
     Indication: SKIN WRINKLING
     Dosage: UNK
     Route: 023
     Dates: start: 20110201, end: 20110201
  2. CEPHRADINE [Concomitant]
     Indication: URINARY TRACT INFECTION
     Dosage: 250 MG, QID
     Route: 048
     Dates: start: 20110114, end: 20110119

REACTIONS (4)
  - DYSPHAGIA [None]
  - CHEST PAIN [None]
  - ANXIETY [None]
  - DIARRHOEA [None]
